FAERS Safety Report 10178245 (Version 2)
Quarter: 2014Q2

REPORT INFORMATION
  Report Type: Spontaneous
  Country: BR (occurrence: BR)
  Receive Date: 20140519
  Receipt Date: 20140610
  Transmission Date: 20141212
  Serious: Yes (Death, Life-Threatening, Hospitalization, Other)
  Sender: FDA-Public Use
  Company Number: BR-BRISTOL-MYERS SQUIBB COMPANY-20749453

PATIENT
  Age: 83 Year
  Sex: Male

DRUGS (1)
  1. ONGLYZA TABS 5 MG [Suspect]
     Indication: DIABETES MELLITUS

REACTIONS (7)
  - Myxoedema coma [Fatal]
  - Acute respiratory failure [Fatal]
  - Pneumonia aspiration [Fatal]
  - Carotid artery occlusion [Unknown]
  - Blood creatinine increased [Unknown]
  - Hypoglycaemia [Unknown]
  - Infarction [Unknown]
